FAERS Safety Report 21626726 (Version 3)
Quarter: 2023Q1

REPORT INFORMATION
  Report Type: Spontaneous
  Country: CA (occurrence: None)
  Receive Date: 20221122
  Receipt Date: 20230216
  Transmission Date: 20230418
  Serious: Yes (Other)
  Sender: FDA-Public Use
  Company Number: CA-PFIZER INC-202201253421

PATIENT
  Age: 45 Year
  Sex: Male

DRUGS (4)
  1. METHOTREXATE [Suspect]
     Active Substance: METHOTREXATE
     Indication: Psoriasis
     Route: 065
     Dates: start: 202103, end: 202107
  2. LEFLUNOMIDE [Suspect]
     Active Substance: LEFLUNOMIDE
     Indication: Product used for unknown indication
     Route: 065
     Dates: end: 202207
  3. ABRILADA [Concomitant]
     Active Substance: ADALIMUMAB-AFZB
     Indication: Psoriasis
     Dosage: 80MG WEEK 0 THEN 40MG EVERY 2 WEEKS STARTING WEEK 1;?ONGOING
     Route: 058
     Dates: start: 20221115
  4. ABRILADA [Concomitant]
     Active Substance: ADALIMUMAB-AFZB
     Dosage: STARTING WEEK 1
     Route: 058

REACTIONS (5)
  - Wound infection [Not Recovered/Not Resolved]
  - Limb injury [Not Recovered/Not Resolved]
  - Pyoderma gangrenosum [Recovered/Resolved]
  - Drug ineffective [Unknown]
  - Psoriasis [Unknown]

NARRATIVE: CASE EVENT DATE: 20220101
